FAERS Safety Report 8759220 (Version 1)
Quarter: 2012Q4

REPORT INFORMATION
  Report Type: 
  Country: CA (occurrence: GB)
  Receive Date: 20120829
  Receipt Date: 20120829
  Transmission Date: 20130627
  Serious: Yes (Other)
  Sender: FDA-Public Use
  Company Number: CA-NOVEN-12CA005184

PATIENT
  Age: 36 Year
  Sex: Female

DRUGS (5)
  1. PAROXETINE [Suspect]
     Indication: GENERALISED ANXIETY DISORDER
     Dosage: 17.5 mg, qd
     Route: 065
     Dates: start: 2010
  2. PAROXETINE [Suspect]
     Indication: PANIC ATTACK
  3. CLONAZEPAM [Suspect]
     Indication: PANIC ATTACK
     Dosage: 1 mg, qd
     Route: 065
     Dates: start: 2010
  4. CLONAZEPAM [Suspect]
     Indication: MOOD ALTERED
  5. UNKNOWN [Concomitant]

REACTIONS (7)
  - Ophthalmoplegia [Not Recovered/Not Resolved]
  - Hemiparesis [Unknown]
  - Anhedonia [Recovering/Resolving]
  - Pain in extremity [Recovering/Resolving]
  - Alopecia [Unknown]
  - Libido decreased [Unknown]
  - Neck pain [Recovering/Resolving]
